FAERS Safety Report 20968248 (Version 1)
Quarter: 2022Q2

REPORT INFORMATION
  Report Type: Spontaneous
  Country: US (occurrence: US)
  Receive Date: 20220616
  Receipt Date: 20220616
  Transmission Date: 20220721
  Serious: No
  Sender: FDA-Public Use
  Company Number: US-SUNOVION-2022SUN001758

PATIENT
  Sex: Male

DRUGS (1)
  1. LATUDA [Suspect]
     Active Substance: LURASIDONE HYDROCHLORIDE
     Dosage: 60 MG
     Route: 048

REACTIONS (6)
  - Screaming [Unknown]
  - Feeling abnormal [Unknown]
  - Mania [Unknown]
  - Aggression [Unknown]
  - Insomnia [Unknown]
  - Therapy interrupted [Unknown]
